FAERS Safety Report 10052436 (Version 3)
Quarter: 2014Q2

REPORT INFORMATION
  Report Type: Report from Study
  Country: HR (occurrence: HR)
  Receive Date: 20140402
  Receipt Date: 20140520
  Transmission Date: 20141212
  Serious: Yes (Other)
  Sender: FDA-Public Use
  Company Number: HR-ASTELLAS-2014EU002622

PATIENT
  Age: 78 Year
  Sex: Male

DRUGS (11)
  1. TACROLIMUS [Suspect]
     Indication: IMMUNOSUPPRESSION
     Route: 065
     Dates: start: 20130207
  2. CELLCEPT                           /01275102/ [Suspect]
     Indication: IMMUNOSUPPRESSION
     Route: 065
     Dates: start: 20120502
  3. MEDROL                             /00049601/ [Suspect]
     Indication: IMMUNOSUPPRESSION
     Route: 065
     Dates: start: 20120502
  4. CONCOR [Concomitant]
     Indication: HYPERTENSION
     Route: 048
  5. CONCOR [Concomitant]
     Indication: SUPRAVENTRICULAR EXTRASYSTOLES
  6. NORVASC [Concomitant]
     Indication: HYPERTENSION
     Route: 048
  7. SPIRIVA [Concomitant]
     Indication: CHRONIC OBSTRUCTIVE PULMONARY DISEASE
     Route: 055
  8. FURSEMID                           /00032601/ [Concomitant]
     Indication: HYPERTENSION
     Route: 048
  9. FURSEMID                           /00032601/ [Concomitant]
     Indication: CARDIOMYOPATHY
  10. GLURENORM [Concomitant]
     Indication: DIABETES MELLITUS
     Route: 048
     Dates: start: 20120830
  11. CORDARONE [Concomitant]
     Indication: SUPRAVENTRICULAR EXTRASYSTOLES
     Route: 048
     Dates: start: 20121115

REACTIONS (2)
  - Chronic obstructive pulmonary disease [Recovered/Resolved]
  - Bronchitis [Recovered/Resolved]
